FAERS Safety Report 25511515 (Version 1)
Quarter: 2025Q3

REPORT INFORMATION
  Report Type: Spontaneous
  Country: US (occurrence: US)
  Receive Date: 20250703
  Receipt Date: 20250703
  Transmission Date: 20251020
  Serious: No
  Sender: RADIUS PHARM
  Company Number: US-RADIUS HEALTH INC.-2024US007096

PATIENT
  Sex: Female

DRUGS (6)
  1. TYMLOS [Suspect]
     Active Substance: ABALOPARATIDE
     Indication: Steroid therapy
     Route: 058
     Dates: start: 2024
  2. LISINOPRIL [Concomitant]
     Active Substance: LISINOPRIL
     Indication: Product used for unknown indication
  3. HYDROCHLOROTHIAZIDE [Concomitant]
     Active Substance: HYDROCHLOROTHIAZIDE
     Indication: Product used for unknown indication
  4. PRALUENT [Concomitant]
     Active Substance: ALIROCUMAB
     Indication: Product used for unknown indication
  5. FASENRA [Concomitant]
     Active Substance: BENRALIZUMAB
     Indication: Product used for unknown indication
  6. PREDNISONE [Concomitant]
     Active Substance: PREDNISONE
     Indication: Product used for unknown indication

REACTIONS (4)
  - Blood pressure systolic increased [Unknown]
  - Intentional dose omission [Not Recovered/Not Resolved]
  - Pulse abnormal [Unknown]
  - Condition aggravated [Unknown]

NARRATIVE: CASE EVENT DATE: 20240101
